FAERS Safety Report 6482669-3 (Version None)
Quarter: 2009Q4

REPORT INFORMATION
  Report Type: 
  Country: None (occurrence: None)
  Receive Date: 20091209
  Receipt Date: 20091127
  Transmission Date: 20100525
  Serious: Yes (Hospitalization, Disabling, Other)
  Sender: FDA-Public Use
  Company Number: DK-BAYER-200825443GPV

PATIENT
  Age: 35 Year
  Sex: Female
  Weight: 54 kg

DRUGS (4)
  1. YASMIN [Suspect]
     Indication: CONTRACEPTION
     Route: 048
     Dates: start: 20051101, end: 20080207
  2. EFFEXOR [Concomitant]
     Dosage: 150 MG 1+0+0+0
  3. PINEX [Concomitant]
     Dosage: 500 MG 2+2+2+2
  4. KODEIN SAD [Concomitant]

REACTIONS (20)
  - ABDOMINAL PAIN [None]
  - CEREBRAL INFARCTION [None]
  - CEREBRAL THROMBOSIS [None]
  - DECREASED APPETITE [None]
  - DISTURBANCE IN ATTENTION [None]
  - DIZZINESS [None]
  - EPILEPSY [None]
  - FATIGUE [None]
  - HEADACHE [None]
  - HEMIANOPIA HOMONYMOUS [None]
  - IMPATIENCE [None]
  - IRRITABILITY [None]
  - LOSS OF EMPLOYMENT [None]
  - MEMORY IMPAIRMENT [None]
  - MENORRHAGIA [None]
  - NAUSEA [None]
  - PARAESTHESIA [None]
  - SLEEP DISORDER [None]
  - VISUAL FIELD DEFECT [None]
  - VISUAL IMPAIRMENT [None]
